FAERS Safety Report 7721118-1 (Version None)
Quarter: 2011Q3

REPORT INFORMATION
  Report Type: 
  Country: None (occurrence: None)
  Receive Date: 20110831
  Receipt Date: 20110817
  Transmission Date: 20111222
  Serious: Yes (Hospitalization)
  Sender: FDA-Public Use
  Company Number: DE-ACTELION-A-US2010-42565

PATIENT

DRUGS (15)
  1. PARACODIN BITARTRATE TAB [Concomitant]
  2. OXYGEN [Concomitant]
  3. ENOXAPARIN SODIUM [Concomitant]
  4. RIOCIGUAT [Concomitant]
  5. MARCUMAR [Concomitant]
  6. ALLOPURINOL [Concomitant]
  7. TORSEMIDE [Concomitant]
  8. PANTOPRAZOLE [Concomitant]
  9. ACETYLCYSTEINE [Concomitant]
  10. VIANI [Concomitant]
  11. ALDACTONE [Concomitant]
  12. VENTAVIS [Suspect]
     Indication: PULMONARY ARTERIAL HYPERTENSION
     Dosage: 5 UG, Q4H
     Route: 055
     Dates: start: 20090723, end: 20110627
  13. FENISTIL [Concomitant]
  14. INSPRA [Concomitant]
  15. MOVIPREP [Concomitant]

REACTIONS (20)
  - RESPIRATORY FAILURE [None]
  - GASTROENTERITIS [None]
  - COUGH [None]
  - PULMONARY HYPERTENSION [None]
  - ECZEMA ASTEATOTIC [None]
  - SYNCOPE [None]
  - PYOGENIC GRANULOMA [None]
  - CONDITION AGGRAVATED [None]
  - CONJUNCTIVITIS BACTERIAL [None]
  - DIARRHOEA [None]
  - NAUSEA [None]
  - HYPERVENTILATION [None]
  - ERYTHEMA [None]
  - FLUID OVERLOAD [None]
  - HAEMOPTYSIS [None]
  - RENAL FAILURE [None]
  - OXYGEN SATURATION DECREASED [None]
  - SINUSITIS [None]
  - EXERCISE TOLERANCE DECREASED [None]
  - LUNG TRANSPLANT [None]
